FAERS Safety Report 7534763-3 (Version None)
Quarter: 2011Q2

REPORT INFORMATION
  Report Type: 
  Country: None (occurrence: None)
  Receive Date: 20110609
  Receipt Date: 20080708
  Transmission Date: 20111010
  Serious: Yes (Hospitalization, Disabling, Other)
  Sender: FDA-Public Use
  Company Number: PHHY2008BR10305

PATIENT
  Age: 69 Year
  Sex: Female

DRUGS (3)
  1. EXFORGE [Suspect]
     Dosage: 32 MG, QD
     Route: 048
  2. AMLODIPINE [Concomitant]
  3. DIOVAN [Suspect]
     Dosage: 160 MG, QD
     Route: 048
     Dates: start: 20060101

REACTIONS (4)
  - GAIT DISTURBANCE [None]
  - BLOOD PRESSURE ABNORMAL [None]
  - DEPRESSION [None]
  - DIARRHOEA [None]
